FAERS Safety Report 7338698-0 (Version None)
Quarter: 2011Q1

REPORT INFORMATION
  Report Type: 
  Country: None (occurrence: None)
  Receive Date: 20110308
  Receipt Date: 20110228
  Transmission Date: 20110831
  Serious: Yes (Other)
  Sender: FDA-Public Use
  Company Number: A0915862A

PATIENT
  Age: 54 Year
  Sex: Female

DRUGS (3)
  1. LAMICTAL [Suspect]
     Dosage: 50MG PER DAY
     Route: 065
     Dates: start: 20110221
  2. DILANTIN [Suspect]
     Route: 065
     Dates: start: 20101001, end: 20110101
  3. NO CONCURRENT MEDICATION [Concomitant]

REACTIONS (12)
  - URTICARIA [None]
  - TINNITUS [None]
  - PANIC ATTACK [None]
  - INSOMNIA [None]
  - PALPITATIONS [None]
  - PHOTOPSIA [None]
  - MUSCLE SPASMS [None]
  - ANGER [None]
  - PARTIAL SEIZURES [None]
  - MOOD SWINGS [None]
  - MALAISE [None]
  - DRUG INEFFECTIVE [None]
